FAERS Safety Report 8244946-5 (Version None)
Quarter: 2012Q1

REPORT INFORMATION
  Report Type: 
  Country: None (occurrence: None)
  Receive Date: 20120329
  Receipt Date: 20110930
  Transmission Date: 20120608
  Serious: No
  Sender: FDA-Public Use
  Company Number: US-MYLANLABS-2011S1020647

PATIENT
  Age: 54 Year
  Sex: Female

DRUGS (5)
  1. FENTANYL-100 [Suspect]
     Indication: CANCER PAIN
     Dosage: Q72H
     Route: 062
     Dates: start: 20110922, end: 20110929
  2. ZOFRAN [Concomitant]
     Indication: NAUSEA
  3. REGLAN [Concomitant]
     Indication: NAUSEA
  4. FENTANYL-100 [Suspect]
     Dosage: Q72HR
     Route: 062
     Dates: start: 20110922, end: 20110925
  5. XELODA [Concomitant]
     Dates: start: 20110701

REACTIONS (4)
  - FEELING ABNORMAL [None]
  - DIZZINESS [None]
  - NAUSEA [None]
  - DRUG EFFECT INCREASED [None]
